FAERS Safety Report 20658308 (Version 1)
Quarter: 2022Q1

REPORT INFORMATION
  Report Type: Report from Study
  Country: DE (occurrence: DE)
  Receive Date: 20220331
  Receipt Date: 20220331
  Transmission Date: 20220423
  Serious: Yes (Other)
  Sender: FDA-Public Use
  Company Number: DE-NOVARTISPH-NVSC2022DE058229

PATIENT
  Sex: Female
  Weight: 53 kg

DRUGS (11)
  1. KISQALI [Suspect]
     Active Substance: RIBOCICLIB
     Indication: Hormone receptor positive HER2 negative breast cancer
     Dosage: 600 MG (SCHEMA 21 DAYS INTAKE, 7 DAYS PAUSE, DAILY DOSE)
     Route: 048
     Dates: start: 20200701, end: 20200714
  2. KISQALI [Suspect]
     Active Substance: RIBOCICLIB
     Dosage: 400 MG (SCHEMA 21 DAYS INTAKE, 7 DAYS PAUSE, DAILY DOSE)
     Route: 048
     Dates: start: 20200729, end: 20200825
  3. KISQALI [Suspect]
     Active Substance: RIBOCICLIB
     Dosage: 400 MG (SCHEMA 21 DAYS INTAKE, 7 DAYS PAUSE, DAILY DOSE)
     Route: 048
     Dates: start: 20200909, end: 20201103
  4. KISQALI [Suspect]
     Active Substance: RIBOCICLIB
     Dosage: 400 MG (SCHEMA 21 DAYS INTAKE, 7 DAYS PAUSE, DAILY DOSE)
     Route: 048
     Dates: start: 20201110, end: 20201207
  5. KISQALI [Suspect]
     Active Substance: RIBOCICLIB
     Dosage: 400 MG (SCHEMA 21 DAYS INTAKE, 7 DAYS PAUSE, DAILY DOSE)
     Route: 048
     Dates: start: 20201209, end: 20210202
  6. KISQALI [Suspect]
     Active Substance: RIBOCICLIB
     Dosage: 400 MG (SCHEMA 21 DAYS INTAKE, 7 DAYS PAUSE, DAILY DOSE)
     Route: 048
     Dates: start: 20210217, end: 20210928
  7. KISQALI [Suspect]
     Active Substance: RIBOCICLIB
     Dosage: 400 MG (SCHEMA 21 DAYS INTAKE, 7 DAYS PAUSE, DAILY DOSE)
     Route: 048
     Dates: start: 20211117, end: 20211214
  8. KISQALI [Suspect]
     Active Substance: RIBOCICLIB
     Dosage: 400 MG (SCHEMA 21 DAYS INTAKE, 7 DAYS PAUSE, DAILY DOSE)
     Route: 048
     Dates: start: 20211222, end: 20220215
  9. KISQALI [Suspect]
     Active Substance: RIBOCICLIB
     Dosage: 400 MG (SCHEMA 21 DAYS INTAKE, 7 DAYS PAUSE, DAILY DOSE)
     Route: 048
     Dates: start: 20220310
  10. LETROZOLE [Suspect]
     Active Substance: LETROZOLE
     Indication: Hormone receptor positive HER2 negative breast cancer
     Dosage: 2.5 MG, QD
     Route: 048
     Dates: start: 20200701
  11. LETROZOLE [Suspect]
     Active Substance: LETROZOLE
     Dosage: UNK
     Route: 065
     Dates: end: 20220227

REACTIONS (2)
  - Electrocardiogram QT prolonged [Recovering/Resolving]
  - Cardiac failure [Unknown]

NARRATIVE: CASE EVENT DATE: 20220228
